FAERS Safety Report 6769219-9 (Version None)
Quarter: 2010Q2

REPORT INFORMATION
  Report Type: 
  Country: None (occurrence: None)
  Receive Date: 20100604
  Receipt Date: 20100526
  Transmission Date: 20101027
  Serious: Yes (Hospitalization)
  Sender: FDA-Public Use
  Company Number: 2010SP029676

PATIENT
  Age: 59 Year
  Sex: Female

DRUGS (8)
  1. MIRTAZAPINE [Suspect]
     Indication: DEPRESSION
     Dosage: 15 MG;QD;PO, 30 MG;ONCE;PO, 15 MG;QD;PO
     Route: 048
     Dates: start: 20100421, end: 20100502
  2. MIRTAZAPINE [Suspect]
     Indication: DEPRESSION
     Dosage: 15 MG;QD;PO, 30 MG;ONCE;PO, 15 MG;QD;PO
     Route: 048
     Dates: start: 20100503, end: 20100503
  3. MIRTAZAPINE [Suspect]
     Indication: DEPRESSION
     Dosage: 15 MG;QD;PO, 30 MG;ONCE;PO, 15 MG;QD;PO
     Route: 048
     Dates: start: 20100504, end: 20100512
  4. ALPRAZOLAM [Concomitant]
  5. ZOLPIDEM TARTRATE [Concomitant]
  6. CHINESE HERBAL MEDICINE [Concomitant]
  7. DOGMATYL [Concomitant]
  8. ZOLOFT [Concomitant]

REACTIONS (9)
  - ABNORMAL BEHAVIOUR [None]
  - ANXIETY [None]
  - APHAGIA [None]
  - CONDITION AGGRAVATED [None]
  - DEPRESSED MOOD [None]
  - FATIGUE [None]
  - HYPERVENTILATION [None]
  - IRRITABILITY [None]
  - SOMNOLENCE [None]
